FAERS Safety Report 6786008-X (Version None)
Quarter: 2010Q2

REPORT INFORMATION
  Report Type: 
  Country: None (occurrence: None)
  Receive Date: 20100622
  Receipt Date: 20100622
  Transmission Date: 20101027
  Serious: Yes (Other)
  Sender: FDA-Public Use
  Company Number: None

PATIENT
  Age: 60 Year
  Sex: Female
  Weight: 106.5953 kg

DRUGS (1)
  1. ACETAMINOPHEN 500 MG ASSURED [Suspect]
     Indication: PROCEDURAL PAIN
     Dosage: 1 6 HRS PO
     Route: 048
     Dates: start: 20100614, end: 20100621

REACTIONS (3)
  - GASTROINTESTINAL DISORDER [None]
  - GASTROINTESTINAL PAIN [None]
  - PRODUCT QUALITY ISSUE [None]
